FAERS Safety Report 11212626 (Version 9)
Quarter: 2017Q1

REPORT INFORMATION
  Report Type: Report from Study
  Country: US (occurrence: US)
  Receive Date: 20150623
  Receipt Date: 20170202
  Transmission Date: 20170428
  Serious: Yes (Hospitalization, Other)
  Sender: FDA-Public Use
  Company Number: US-ACTELION-A-NJ2015-111997

PATIENT
  Age: 79 Year
  Sex: Female

DRUGS (11)
  1. OPSUMIT [Suspect]
     Active Substance: MACITENTAN
     Indication: PULMONARY HYPERTENSION
     Dosage: 10 MG, QD
     Route: 048
     Dates: start: 20141212
  2. REVATIO [Concomitant]
     Active Substance: SILDENAFIL CITRATE
     Dosage: 20 MG, TID
  3. BUDESONIDE. [Concomitant]
     Active Substance: BUDESONIDE
     Dosage: UNK, BID
     Route: 055
  4. CLONAZEPAM. [Concomitant]
     Active Substance: CLONAZEPAM
     Dosage: 0.5 MG, QPM
  5. LOSARTAN. [Concomitant]
     Active Substance: LOSARTAN
     Dosage: 12.5 MG, BID
  6. ALBUTEROL. [Concomitant]
     Active Substance: ALBUTEROL
  7. VITAMIN D [Concomitant]
     Active Substance: CHOLECALCIFEROL
     Dosage: 1000 UNK, QD
  8. IRON [Concomitant]
     Active Substance: IRON
     Dosage: 325 MG, BID
  9. ELIQUIS [Concomitant]
     Active Substance: APIXABAN
  10. WARFARIN [Concomitant]
     Active Substance: WARFARIN
  11. ADEMPAS [Concomitant]
     Active Substance: RIOCIGUAT
     Dosage: UNK
     Dates: end: 20161103

REACTIONS (30)
  - Cardiac pacemaker insertion [Recovered/Resolved]
  - Respiratory failure [Recovered/Resolved]
  - Fall [Unknown]
  - Hypoaesthesia [Unknown]
  - Cerebrovascular accident [Unknown]
  - Pneumonia [Unknown]
  - Dizziness [Unknown]
  - Hypoaesthesia [Unknown]
  - Poor peripheral circulation [Unknown]
  - Eye contusion [Unknown]
  - Nasal congestion [Unknown]
  - Palpitations [Unknown]
  - Cardiac arrest [Recovered/Resolved]
  - Pleural effusion [Unknown]
  - Deep vein thrombosis [Recovered/Resolved]
  - Blood potassium decreased [Unknown]
  - Malaise [Unknown]
  - Loss of consciousness [Unknown]
  - Vision blurred [Unknown]
  - Cataract operation [Unknown]
  - Pulmonary congestion [Unknown]
  - Productive cough [Unknown]
  - Blood pressure fluctuation [Unknown]
  - Fluid retention [Unknown]
  - Oedema peripheral [Unknown]
  - Oxygen saturation decreased [Unknown]
  - Syncope [Unknown]
  - Therapy non-responder [Unknown]
  - Dyspnoea [Unknown]
  - Cataract [Unknown]

NARRATIVE: CASE EVENT DATE: 20150121
